FAERS Safety Report 9392660 (Version 1)
Quarter: 2013Q3

REPORT INFORMATION
  Report Type: Spontaneous
  Country: BR (occurrence: BR)
  Receive Date: 20130710
  Receipt Date: 20130710
  Transmission Date: 20140515
  Serious: Yes (Death, Hospitalization, Other)
  Sender: FDA-Public Use
  Company Number: PHHY2011BR16617

PATIENT
  Age: 70 Year
  Sex: Female

DRUGS (16)
  1. HYDRALAZINE [Suspect]
  2. HYDROCHLOROTHIAZIDE [Suspect]
     Dosage: 25 MG, UNK
  3. CHLORTHALIDONE [Suspect]
  4. ENALAPRIL [Concomitant]
     Dosage: 20 MG, UNK
  5. SPIRONOLACTONE [Concomitant]
     Dosage: 25 MG, UNK
  6. VERAPAMIL [Concomitant]
     Dosage: 240 MG, DAILY
  7. GLIBENCLAMIDE [Concomitant]
     Dosage: 5 MG, UNK
  8. GLIBENCLAMIDE [Concomitant]
     Dosage: 10 MG, UNK
  9. BEZAFIBRATE [Concomitant]
     Dosage: 400 MG, UNK
  10. SIMVASTATIN [Concomitant]
     Dosage: 20 MG, UNK
  11. METHYLDOPA [Concomitant]
  12. CLONIDINE [Concomitant]
  13. AMLODIPINE [Concomitant]
  14. CEFTRIAXONE [Concomitant]
     Dosage: 2 G, DAILY BASIS
  15. CLARITHROMYCIN [Concomitant]
     Dosage: 1 G, DAILY BASIS
  16. DIGOXIN [Concomitant]

REACTIONS (24)
  - Respiratory failure [Fatal]
  - Haemodynamic instability [Fatal]
  - Hypotension [Fatal]
  - Cardiac arrest [Fatal]
  - Pulseless electrical activity [Fatal]
  - Left ventricular hypertrophy [Unknown]
  - Tricuspid valve incompetence [Unknown]
  - Pneumonia [Unknown]
  - Crepitations [Unknown]
  - Lung infiltration [Unknown]
  - Respiratory rate increased [Unknown]
  - Bronchospasm [Unknown]
  - Electrocardiogram ST segment depression [Unknown]
  - Dyspnoea [Unknown]
  - Cough [Unknown]
  - Blood pressure increased [Unknown]
  - Decreased appetite [Unknown]
  - Fatigue [Unknown]
  - Radial pulse decreased [Unknown]
  - Oedema peripheral [Unknown]
  - Diabetes mellitus inadequate control [Unknown]
  - Blood potassium decreased [Unknown]
  - Atrial tachycardia [Unknown]
  - Supraventricular extrasystoles [Unknown]
